FAERS Safety Report 9159415 (Version 1)
Quarter: 2013Q1

REPORT INFORMATION
  Report Type: Spontaneous
  Country: BR (occurrence: BR)
  Receive Date: 20130313
  Receipt Date: 20130313
  Transmission Date: 20140127
  Serious: Yes (Other)
  Sender: FDA-Public Use
  Company Number: PHHY2013BR023195

PATIENT
  Sex: Female

DRUGS (2)
  1. GALVUS [Suspect]
     Indication: DIABETES MELLITUS
     Dosage: 50 MG, QD
  2. DIOVAN HCT [Suspect]
     Indication: HYPERTENSION
     Dosage: 2 DF DAILY (160 MG VALS AND 12.5 MG HCTZ)
     Dates: start: 201212

REACTIONS (2)
  - Cerebrovascular accident [Recovering/Resolving]
  - Speech disorder [Recovering/Resolving]
